FAERS Safety Report 6941129-3 (Version None)
Quarter: 2010Q3

REPORT INFORMATION
  Report Type: 
  Country: None (occurrence: None)
  Receive Date: 20100825
  Receipt Date: 20100511
  Transmission Date: 20110219
  Serious: No
  Sender: FDA-Public Use
  Company Number: US-BRISTOL-MYERS SQUIBB COMPANY-15099757

PATIENT
  Age: 56 Year
  Sex: Male

DRUGS (2)
  1. ONGLYZA [Suspect]
     Indication: DIABETES MELLITUS
  2. METFORMIN HCL [Concomitant]
     Indication: DIABETES MELLITUS

REACTIONS (1)
  - DYSPNOEA [None]
